FAERS Safety Report 5532182-2 (Version None)
Quarter: 2007Q4

REPORT INFORMATION
  Report Type: 
  Country: None (occurrence: None)
  Receive Date: 20071203
  Receipt Date: 20071127
  Transmission Date: 20080405
  Serious: Yes (Hospitalization, Disabling, Other)
  Sender: FDA-Public Use
  Company Number: US-AVENTIS-200715660EU

PATIENT
  Age: 33 Year
  Sex: Female
  Weight: 54 kg

DRUGS (5)
  1. LASIX [Suspect]
     Indication: PULMONARY HYPERTENSION
     Route: 048
  2. VIAGRA [Suspect]
     Indication: PULMONARY HYPERTENSION
     Route: 048
     Dates: start: 20060501
  3. TRACLEER [Concomitant]
     Route: 048
     Dates: start: 20040516
  4. ALDACTONE [Concomitant]
     Route: 048
  5. DORNER [Concomitant]
     Route: 048
     Dates: start: 20040501

REACTIONS (2)
  - DEAFNESS [None]
  - DIZZINESS [None]
